FAERS Safety Report 9386286 (Version 1)
Quarter: 2013Q3

REPORT INFORMATION
  Report Type: Report from Study
  Country: US (occurrence: US)
  Receive Date: 20130708
  Receipt Date: 20130708
  Transmission Date: 20140515
  Serious: Yes (Death, Life-Threatening, Hospitalization)
  Sender: FDA-Public Use
  Company Number: US-JNJFOC-20130616091

PATIENT
  Age: 36 Year
  Sex: Female
  Weight: 87.8 kg

DRUGS (12)
  1. APAP [Suspect]
     Route: 048
  2. APAP [Suspect]
     Indication: PRODUCT USED FOR UNKNOWN INDICATION
     Route: 048
  3. DIPHENHYDRAMINE [Suspect]
     Indication: PRODUCT USED FOR UNKNOWN INDICATION
     Route: 048
  4. OXYCODONE [Suspect]
     Indication: PRODUCT USED FOR UNKNOWN INDICATION
     Route: 048
  5. HYDROCODONE [Suspect]
     Indication: PRODUCT USED FOR UNKNOWN INDICATION
     Route: 048
  6. CITALOPRAM [Suspect]
     Indication: PRODUCT USED FOR UNKNOWN INDICATION
     Route: 048
  7. DEXTROMETHORPHAN [Suspect]
     Indication: PRODUCT USED FOR UNKNOWN INDICATION
     Route: 048
  8. CARISOPRODOL [Concomitant]
     Indication: PRODUCT USED FOR UNKNOWN INDICATION
     Route: 065
  9. MEPROBAMATE [Concomitant]
     Indication: PRODUCT USED FOR UNKNOWN INDICATION
     Route: 065
  10. IBUPROFEN [Concomitant]
     Indication: PRODUCT USED FOR UNKNOWN INDICATION
     Route: 065
  11. TRAMADOL [Concomitant]
     Indication: PRODUCT USED FOR UNKNOWN INDICATION
     Route: 065
  12. ALPRAZOLAM [Concomitant]
     Indication: PRODUCT USED FOR UNKNOWN INDICATION
     Route: 065

REACTIONS (16)
  - Intentional overdose [Unknown]
  - Coma [Recovered/Resolved]
  - Intestinal ischaemia [Unknown]
  - Ischaemic hepatitis [Unknown]
  - Shock [Unknown]
  - Acute hepatic failure [Fatal]
  - Myocardial infarction [Unknown]
  - Convulsion [Unknown]
  - Hypotension [Unknown]
  - Metabolic acidosis [Unknown]
  - Renal failure [Fatal]
  - Respiratory failure [Fatal]
  - Upper gastrointestinal haemorrhage [Unknown]
  - Ventricular arrhythmia [Unknown]
  - Cardiac arrest [Unknown]
  - Stress ulcer [Unknown]
